FAERS Safety Report 6884343-8 (Version None)
Quarter: 2010Q3

REPORT INFORMATION
  Report Type: 
  Country: None (occurrence: None)
  Receive Date: 20100729
  Receipt Date: 20070613
  Transmission Date: 20110219
  Serious: No
  Sender: FDA-Public Use
  Company Number: US-PFIZER INC-2007049076

PATIENT
  Sex: Male
  Weight: 68.181 kg

DRUGS (2)
  1. CELEBREX [Suspect]
     Indication: LIMB DISCOMFORT
     Dates: start: 20050101
  2. HYDROCODONE BITARTRATE [Concomitant]

REACTIONS (1)
  - DYSPEPSIA [None]
